FAERS Safety Report 9848365 (Version 1)
Quarter: 2013Q4

REPORT INFORMATION
  Report Type: Spontaneous
  Country: US (occurrence: None)
  Receive Date: 20131224
  Receipt Date: 20131224
  Transmission Date: 20140711
  Serious: Yes (Other)
  Sender: FDA-Public Use
  Company Number: PHEH2013US016411

PATIENT
  Age: 46 Year
  Sex: Male

DRUGS (7)
  1. MYFORTIC (MYCOPHENOLIC ACID) UNKNOWN [Suspect]
     Route: 048
  2. HECORIA (TACROLIMUS) [Concomitant]
  3. PREDNISONE (PREDNISONE) [Concomitant]
  4. LIPITOR (ATORVASTATIN CALCIUM) [Concomitant]
  5. PROGRAF (TACROLIMUS) [Concomitant]
  6. METFORMIN (METFORMIN) [Concomitant]
  7. CARVEDILOL (CARVEDILOL) [Concomitant]

REACTIONS (4)
  - Diabetes mellitus [None]
  - Hypertension [None]
  - Abdominal discomfort [None]
  - Diarrhoea [None]
